FAERS Safety Report 8971339 (Version 1)
Quarter: 2012Q4

REPORT INFORMATION
  Report Type: 
  Country: US (occurrence: US)
  Receive Date: 20121218
  Receipt Date: 20121218
  Transmission Date: 20130627
  Serious: Yes (Hospitalization)
  Sender: FDA-Public Use
  Company Number: US-ELI_LILLY_AND_COMPANY-US201212001866

PATIENT
  Sex: Female

DRUGS (5)
  1. FORTEO [Suspect]
     Indication: OSTEOPOROSIS
     Dosage: 20 u, qd
  2. FORTEO [Suspect]
     Dosage: 20 u, qd
  3. COUMADIN [Concomitant]
     Dosage: UNK
  4. METHOTREXATE [Concomitant]
     Dosage: UNK
  5. REMICAIDE [Concomitant]
     Dosage: UNK

REACTIONS (3)
  - Cardiac failure congestive [Unknown]
  - Coronary artery occlusion [Unknown]
  - Coagulopathy [Unknown]
